FAERS Safety Report 6266898-X (Version None)
Quarter: 2009Q3

REPORT INFORMATION
  Report Type: 
  Country: None (occurrence: None)
  Receive Date: 20090714
  Receipt Date: 20090701
  Transmission Date: 20100115
  Serious: Yes (Life-Threatening, Other)
  Sender: FDA-Public Use
  Company Number: PHEH2008US04332

PATIENT
  Sex: Female

DRUGS (5)
  1. ESTRADERM [Suspect]
     Indication: HORMONE REPLACEMENT THERAPY
     Dosage: 0.1 UNK, TWICE WEEKLY
     Route: 062
  2. ESTRADERM [Suspect]
     Dosage: 0.05 MG, TWICE WEEKLY
     Route: 062
  3. VIVELLE-DOT [Suspect]
     Indication: MENOPAUSAL SYMPTOMS
     Dosage: 0.05 MG, UNK
  4. VIVELLE-DOT [Suspect]
     Dosage: TWO 0.1 MG/DAY
  5. LEVOXYL [Concomitant]

REACTIONS (24)
  - ABDOMINAL DISTENSION [None]
  - ANGER [None]
  - ANXIETY [None]
  - BRUXISM [None]
  - CHILLS [None]
  - CRYING [None]
  - DECREASED ACTIVITY [None]
  - DEPRESSION [None]
  - DIZZINESS [None]
  - DRUG INEFFECTIVE [None]
  - DRY EYE [None]
  - HEADACHE [None]
  - HOT FLUSH [None]
  - INSOMNIA [None]
  - IRRITABILITY [None]
  - LIBIDO DECREASED [None]
  - MALAISE [None]
  - MENOPAUSAL SYMPTOMS [None]
  - NERVOUSNESS [None]
  - PALPITATIONS [None]
  - PANIC ATTACK [None]
  - SKIN LACERATION [None]
  - SUICIDAL IDEATION [None]
  - TOOTH DISORDER [None]
